FAERS Safety Report 19079149 (Version 1)
Quarter: 2021Q1

REPORT INFORMATION
  Report Type: Spontaneous
  Country: FR (occurrence: FR)
  Receive Date: 20210331
  Receipt Date: 20210331
  Transmission Date: 20210420
  Serious: Yes (Hospitalization)
  Sender: FDA-Public Use
  Company Number: FR-TEVA-2021-FR-1896011

PATIENT
  Age: 43 Year
  Sex: Female

DRUGS (3)
  1. KLIPAL 500 MG, COMPRIME SECABLE [Suspect]
     Active Substance: ACETAMINOPHEN\CODEINE PHOSPHATE
     Dosage: SCORED TABLET
     Route: 048
     Dates: start: 20210120, end: 20210120
  2. TRAMADOL BASE [Suspect]
     Active Substance: TRAMADOL
     Route: 048
     Dates: start: 20210120, end: 20210120
  3. LOXAPAC 100 MG, COMPRIME PELLICULE [Suspect]
     Active Substance: LOXAPINE
     Route: 048
     Dates: start: 20210120, end: 20210120

REACTIONS (2)
  - Coma [Recovered/Resolved]
  - Miosis [Recovered/Resolved]

NARRATIVE: CASE EVENT DATE: 20210120
